FAERS Safety Report 13939917 (Version 1)
Quarter: 2017Q3

REPORT INFORMATION
  Report Type: Spontaneous
  Country: RU (occurrence: RU)
  Receive Date: 20170906
  Receipt Date: 20170906
  Transmission Date: 20171127
  Serious: Yes (Other)
  Sender: FDA-Public Use
  Company Number: RU-CONCORDIA PHARMACEUTICALS INC.-GSH201708-004979

PATIENT
  Age: 29 Year
  Sex: Female

DRUGS (2)
  1. PLAQUENIL [Suspect]
     Active Substance: HYDROXYCHLOROQUINE SULFATE
     Indication: PRODUCT USED FOR UNKNOWN INDICATION
     Route: 048
     Dates: start: 2014
  2. PREDNISOLON [Concomitant]
     Active Substance: PREDNISOLONE

REACTIONS (2)
  - IIIrd nerve paresis [Not Recovered/Not Resolved]
  - Eyelid ptosis [Not Recovered/Not Resolved]
